FAERS Safety Report 8499981-9 (Version None)
Quarter: 2012Q3

REPORT INFORMATION
  Report Type: 
  Country: None (occurrence: None)
  Receive Date: 20120710
  Receipt Date: 20120705
  Transmission Date: 20120928
  Serious: Yes (Death, Hospitalization)
  Sender: FDA-Public Use
  Company Number: SE-ASTRAZENECA-2012SE45635

PATIENT
  Age: 77 Year
  Sex: Male

DRUGS (5)
  1. SIMVASTATIN [Suspect]
     Route: 065
     Dates: start: 20090630, end: 20090701
  2. NITROMEX [Concomitant]
  3. METOPROLOL SUCCINATE [Concomitant]
  4. OMEPRAZOLE [Suspect]
     Route: 048
     Dates: end: 20090701
  5. ASPIRIN [Concomitant]
     Route: 048

REACTIONS (2)
  - DEATH [None]
  - TUBULOINTERSTITIAL NEPHRITIS [None]
